FAERS Safety Report 4805511-2 (Version None)
Quarter: 2005Q4

REPORT INFORMATION
  Report Type: 
  Country: None (occurrence: None)
  Receive Date: 20051018
  Receipt Date: 20051007
  Transmission Date: 20060501
  Serious: Yes (Other)
  Sender: FDA-Public Use
  Company Number: HQWYE713704AUG05

PATIENT
  Age: 77 Year
  Sex: Female
  Weight: 71 kg

DRUGS (11)
  1. TYGACIL [Suspect]
     Indication: LUNG INFECTION
     Dosage: 50 MG TWICE DAILY, INTRAVENOUS
     Route: 042
     Dates: start: 20050803, end: 20050824
  2. TYGACIL [Suspect]
     Indication: MYCOBACTERIUM CHELONEI INFECTION
     Dosage: 50 MG TWICE DAILY, INTRAVENOUS
     Route: 042
     Dates: start: 20050803, end: 20050824
  3. PROTONIX [Concomitant]
  4. AVELOX [Concomitant]
  5. METOPROLOL TARTRATE [Concomitant]
  6. DIGOXIN [Concomitant]
  7. WARFARIN SODIUM [Concomitant]
  8. LEXAPRO [Concomitant]
  9. LOTREL [Concomitant]
  10. AMIKACIN [Concomitant]
  11. OXYGEN (OXYGEN) [Concomitant]

REACTIONS (4)
  - BLOOD ALBUMIN DECREASED [None]
  - BLOOD UREA INCREASED [None]
  - HEPATITIS [None]
  - PROTEIN TOTAL DECREASED [None]
